FAERS Safety Report 5009892-9 (Version None)
Quarter: 2006Q2

REPORT INFORMATION
  Report Type: 
  Country: None (occurrence: None)
  Receive Date: 20060516
  Receipt Date: 20060502
  Transmission Date: 20061013
  Serious: Yes (Death, Hospitalization)
  Sender: FDA-Public Use
  Company Number: THYM-10925

PATIENT
  Age: 56 Year
  Sex: Male
  Weight: 70 kg

DRUGS (15)
  1. THYMOGLOBULIN [Suspect]
     Indication: BONE MARROW TRANSPLANT
     Dosage: 2.5 MG/KG QD IV
     Route: 042
     Dates: start: 20050324, end: 20050325
  2. ENDOXAN [Concomitant]
  3. UROMITEXAN [Concomitant]
  4. HYDREA [Concomitant]
  5. POLARAMINE [Concomitant]
  6. SOLU-MEDROL [Concomitant]
  7. FASTURTEC [Concomitant]
  8. LARGACTIL [Concomitant]
  9. TAZOCILLINE [Concomitant]
  10. HYDROCORTISONE [Concomitant]
  11. VITAMIN K [Concomitant]
  12. FUNGIZONE [Concomitant]
  13. DECONTA [Concomitant]
  14. NEXIUM [Concomitant]
  15. VANCOMYCIN [Concomitant]

REACTIONS (26)
  - ANURIA [None]
  - ARTHRALGIA [None]
  - BACK PAIN [None]
  - BLOOD PRESSURE INCREASED [None]
  - CHOLESTASIS [None]
  - COMA HEPATIC [None]
  - CYTOLYTIC HEPATITIS [None]
  - DISSEMINATED INTRAVASCULAR COAGULATION [None]
  - DRUG INEFFECTIVE [None]
  - EMPHYSEMA [None]
  - GENERAL PHYSICAL HEALTH DETERIORATION [None]
  - HAEMODIALYSIS [None]
  - HEART RATE INCREASED [None]
  - HEPATITIS FULMINANT [None]
  - HYPERKALAEMIA [None]
  - HYPERLACTACIDAEMIA [None]
  - HYPOTENSION [None]
  - INTRAVASCULAR HAEMOLYSIS [None]
  - LEUKAEMIA RECURRENT [None]
  - METABOLIC ACIDOSIS [None]
  - OBSTRUCTIVE AIRWAYS DISORDER [None]
  - PROCEDURAL COMPLICATION [None]
  - RENAL FAILURE [None]
  - STEM CELL TRANSPLANT [None]
  - TRANSPLANT REJECTION [None]
  - WEIGHT DECREASED [None]
